FAERS Safety Report 5774314-7 (Version None)
Quarter: 2008Q2

REPORT INFORMATION
  Report Type: 
  Country: None (occurrence: None)
  Receive Date: 20080616
  Receipt Date: 20080609
  Transmission Date: 20081010
  Serious: No
  Sender: FDA-Public Use
  Company Number: US-BAXTER-2008BH002236

PATIENT
  Age: 19 Year
  Sex: Female
  Weight: 55 kg

DRUGS (4)
  1. HEPARIN SODIUM INJECTION [Suspect]
     Indication: COAGULOPATHY
     Route: 058
     Dates: start: 20070101, end: 20080101
  2. HEPARIN SODIUM INJECTION [Suspect]
     Route: 058
     Dates: start: 20070101, end: 20080101
  3. VITAMIN TAB [Concomitant]
     Indication: PREGNANCY
     Dosage: DOSE UNIT:UNKNOWN
     Route: 065
  4. IRON [Concomitant]
     Indication: MINERAL SUPPLEMENTATION
     Dosage: DOSE UNIT:UNKNOWN
     Route: 065

REACTIONS (7)
  - DRUG EXPOSURE DURING PREGNANCY [None]
  - EPISTAXIS [None]
  - INJECTION SITE INDURATION [None]
  - INJECTION SITE RASH [None]
  - NAUSEA [None]
  - PALLOR [None]
  - PHARYNGOLARYNGEAL PAIN [None]
